FAERS Safety Report 16183288 (Version 7)
Quarter: 2019Q4

REPORT INFORMATION
  Report Type: Spontaneous
  Country: US (occurrence: US)
  Receive Date: 20190411
  Receipt Date: 20191015
  Transmission Date: 20200122
  Serious: Yes (Other)
  Sender: FDA-Public Use
  Company Number: PHEH2019US015250

PATIENT
  Sex: Female

DRUGS (3)
  1. LENVATINIB [Interacting]
     Active Substance: LENVATINIB
     Indication: RENAL CANCER
     Dosage: 18 MG, QD
     Route: 048
  2. LENVATINIB [Interacting]
     Active Substance: LENVATINIB
     Dosage: 14 MG, QD
     Route: 048
  3. AFINITOR [Suspect]
     Active Substance: EVEROLIMUS
     Indication: RENAL CANCER
     Dosage: UNK UNK, QD
     Route: 048

REACTIONS (12)
  - Abdominal pain upper [Unknown]
  - Anal incontinence [Unknown]
  - Musculoskeletal pain [Unknown]
  - Cough [Unknown]
  - Blood pressure increased [Unknown]
  - Bone pain [Unknown]
  - Acne [Unknown]
  - Diarrhoea [Unknown]
  - Pain [Unknown]
  - Insomnia [Unknown]
  - Vomiting [Unknown]
  - Lymphadenopathy [Unknown]
